FAERS Safety Report 6715904-4 (Version None)
Quarter: 2010Q2

REPORT INFORMATION
  Report Type: 
  Country: None (occurrence: None)
  Receive Date: 20100507
  Receipt Date: 20100429
  Transmission Date: 20101027
  Serious: Yes (Other)
  Sender: FDA-Public Use
  Company Number: PHHY2010DE28164

PATIENT
  Age: 51 Year
  Sex: Male

DRUGS (1)
  1. TEGRETOL 400 RETARD [Suspect]
     Dosage: 1600 MG, DAILY
     Route: 048
     Dates: start: 19850101

REACTIONS (1)
  - PARKINSON'S DISEASE [None]
